FAERS Safety Report 8883336 (Version 1)
Quarter: 2012Q4

REPORT INFORMATION
  Report Type: Report from Study
  Country: US (occurrence: US)
  Receive Date: 20121102
  Receipt Date: 20121102
  Transmission Date: 20130627
  Serious: Yes (Other)
  Sender: FDA-Public Use
  Company Number: US-JNJFOC-20121016842

PATIENT
  Sex: Female
  Weight: 53.52 kg

DRUGS (3)
  1. XARELTO [Suspect]
     Indication: PRODUCT USED FOR UNKNOWN INDICATION
     Route: 048
  2. FLECAINIDE [Concomitant]
     Indication: CARDIAC DISORDER
     Route: 048
     Dates: start: 200912
  3. KETOCONAZOLE [Concomitant]
     Indication: DANDRUFF
     Route: 061

REACTIONS (1)
  - Atrial flutter [Unknown]
